FAERS Safety Report 14499118 (Version 1)
Quarter: 2018Q1

REPORT INFORMATION
  Report Type: Spontaneous
  Country: US (occurrence: US)
  Receive Date: 20180207
  Receipt Date: 20180207
  Transmission Date: 20180509
  Serious: No
  Sender: FDA-Public Use
  Company Number: US-JAZZ-2017-US-011766

PATIENT
  Sex: Male

DRUGS (4)
  1. BACLOFEN. [Suspect]
     Active Substance: BACLOFEN
     Indication: MUSCLE SPASTICITY
     Dosage: UNK ?G, QH
     Route: 037
     Dates: start: 2017
  2. PRIALT [Suspect]
     Active Substance: ZICONOTIDE ACETATE
     Indication: MULTIPLE SCLEROSIS
  3. BACLOFEN. [Suspect]
     Active Substance: BACLOFEN
     Indication: MULTIPLE SCLEROSIS
  4. PRIALT [Suspect]
     Active Substance: ZICONOTIDE ACETATE
     Indication: MUSCLE SPASTICITY
     Dosage: UNK ?G, QH
     Route: 037
     Dates: start: 201707, end: 2017

REACTIONS (1)
  - Drug ineffective [Unknown]

NARRATIVE: CASE EVENT DATE: 2017
